FAERS Safety Report 14978567 (Version 1)
Quarter: 2018Q2

REPORT INFORMATION
  Report Type: Report from Study
  Country: BR (occurrence: BR)
  Receive Date: 20180606
  Receipt Date: 20180606
  Transmission Date: 20180711
  Serious: Yes (Other)
  Sender: FDA-Public Use
  Company Number: BR-LPDUSPRD-20180954

PATIENT
  Age: 51 Year
  Sex: Female

DRUGS (1)
  1. VENOFER [Suspect]
     Active Substance: IRON SUCROSE
     Dosage: 100 MG/2 AMPUOLES
     Route: 042

REACTIONS (2)
  - Nausea [Recovered/Resolved]
  - Anal abscess [Unknown]

NARRATIVE: CASE EVENT DATE: 20170523
